FAERS Safety Report 6411391-4 (Version None)
Quarter: 2009Q4

REPORT INFORMATION
  Report Type: 
  Country: None (occurrence: None)
  Receive Date: 20091023
  Receipt Date: 20091013
  Transmission Date: 20100525
  Serious: Yes (Other)
  Sender: FDA-Public Use
  Company Number: US-PFIZER INC-2006155361

PATIENT
  Sex: Female
  Weight: 48 kg

DRUGS (2)
  1. DEPO-PROVERA [Suspect]
     Indication: CONTRACEPTION
     Dosage: UNK
     Route: 030
     Dates: start: 19940101, end: 20040201
  2. DEPO-PROVERA [Suspect]
     Dosage: UNK

REACTIONS (8)
  - BODY HEIGHT DECREASED [None]
  - BONE DISORDER [None]
  - OESOPHAGITIS [None]
  - OSTEOPENIA [None]
  - OSTEOPOROSIS [None]
  - SCIATICA [None]
  - SCOLIOSIS [None]
  - SPINAL OSTEOARTHRITIS [None]
